FAERS Safety Report 13670542 (Version 3)
Quarter: 2017Q4

REPORT INFORMATION
  Report Type: Spontaneous
  Country: GB (occurrence: GB)
  Receive Date: 20170620
  Receipt Date: 20171010
  Transmission Date: 20180320
  Serious: Yes (Hospitalization)
  Sender: FDA-Public Use
  Company Number: GB-SA-2017SA104867

PATIENT
  Age: 44 Year
  Sex: Male
  Weight: 60 kg

DRUGS (2)
  1. LEMTRADA [Suspect]
     Active Substance: ALEMTUZUMAB
     Indication: MULTIPLE SCLEROSIS
     Dosage: REGIMEN: EVERY
     Route: 041
     Dates: start: 2014
  2. PARACETAMOL [Concomitant]
     Active Substance: ACETAMINOPHEN
     Route: 065

REACTIONS (14)
  - End stage renal disease [Unknown]
  - Weight increased [Not Recovered/Not Resolved]
  - Blood creatinine increased [Not Recovered/Not Resolved]
  - Decreased appetite [Unknown]
  - Lethargy [Recovered/Resolved]
  - Anuria [Not Recovered/Not Resolved]
  - Chills [Recovered/Resolved]
  - Urine output decreased [Recovered/Resolved]
  - Anti-glomerular basement membrane antibody positive [Not Recovered/Not Resolved]
  - Pyrexia [Recovered/Resolved]
  - Oedema peripheral [Not Recovered/Not Resolved]
  - Haematuria [Not Recovered/Not Resolved]
  - Goodpasture^s syndrome [Not Recovered/Not Resolved]
  - Vomiting [Recovered/Resolved]
